FAERS Safety Report 9000953 (Version 1)
Quarter: 2012Q4

REPORT INFORMATION
  Report Type: 
  Country: IN (occurrence: None)
  Receive Date: 20121226
  Receipt Date: 20121226
  Transmission Date: 20130627
  Serious: Yes (Death)
  Sender: FDA-Public Use
  Company Number: 2012SP004910

PATIENT
  Age: 60 Year
  Sex: Male

DRUGS (2)
  1. VANCOMYCIN [Suspect]
     Indication: INFECTION MRSA
     Route: 042
  2. LINEZOLID [Suspect]
     Indication: INFECTION MRSA
     Route: 048

REACTIONS (5)
  - CNS ventriculitis [None]
  - Blood creatinine increased [None]
  - Shunt infection [None]
  - Blood urea increased [None]
  - Staphylococcal infection [None]
